FAERS Safety Report 22321231 (Version 1)
Quarter: 2023Q2

REPORT INFORMATION
  Report Type: Spontaneous
  Country: FR (occurrence: FR)
  Receive Date: 20230515
  Receipt Date: 20230515
  Transmission Date: 20230721
  Serious: Yes (Other)
  Sender: FDA-Public Use
  Company Number: None

PATIENT
  Age: 55 Year
  Sex: Male
  Weight: 71 kg

DRUGS (6)
  1. CLOZAPINE [Suspect]
     Active Substance: CLOZAPINE
     Indication: Product used for unknown indication
     Dosage: 300 MILLIGRAM,1 TOTAL,(3 TABLETS OF 100 MG)
     Route: 048
     Dates: start: 20230328, end: 20230328
  2. MIRTAZAPINE [Concomitant]
     Active Substance: MIRTAZAPINE
     Dosage: 30 MILLIGRAM, QD,(2 TABLETS IN THE EVENING)
     Route: 048
     Dates: start: 20220902
  3. CYAMEMAZINE [Concomitant]
     Active Substance: CYAMEMAZINE
     Dosage: 50 MILLIGRAM, QD,(2 TABLETS IN THE EVENING)
     Route: 048
     Dates: start: 20210902
  4. TRIMEPRAZINE [Concomitant]
     Active Substance: TRIMEPRAZINE
     Dosage: UNK,(DRUG NOT ADMINISTERED)
     Route: 048
  5. VALPROATE SODIUM [Concomitant]
     Active Substance: VALPROATE SODIUM
     Dosage: 2 TABLETS IN MORNING,1 AT NOON,3 IN THE EVENING
     Route: 048
     Dates: start: 20210902
  6. MELATONIN [Concomitant]
     Active Substance: MELATONIN
     Dosage: 2 MILLIGRAM,QD,(EVENING,EXTENDED RELEASE TABLET)
     Route: 048
     Dates: start: 20220902

REACTIONS (4)
  - Oxygen saturation decreased [Recovered/Resolved]
  - Somnolence [Recovered/Resolved]
  - Vomiting [Recovered/Resolved]
  - Wrong patient received product [Recovered/Resolved]

NARRATIVE: CASE EVENT DATE: 20230328
